FAERS Safety Report 10688510 (Version 8)
Quarter: 2015Q2

REPORT INFORMATION
  Report Type: Report from Study
  Country: US (occurrence: US)
  Receive Date: 20150102
  Receipt Date: 20150605
  Transmission Date: 20150821
  Serious: Yes (Life-Threatening, Hospitalization)
  Sender: FDA-Public Use
  Company Number: US-MERCK-1310USA005830

PATIENT
  Age: 72 Year
  Sex: Male
  Weight: 100.9 kg

DRUGS (21)
  1. ACETAMINOPHEN. [Concomitant]
     Active Substance: ACETAMINOPHEN
     Indication: DISCOMFORT
     Dosage: TOTAL DAILY DOSE: 650MG,  PRN
     Route: 048
     Dates: start: 201110
  2. CLONIDINE. [Concomitant]
     Active Substance: CLONIDINE
     Indication: HYPERTENSION
     Dosage: TOTAL DAILY DOSE: 0.1MG DAILY, PRN
     Route: 048
     Dates: start: 200908
  3. SENNA S (DOCUSATE SODIUM (+) SENNA) [Concomitant]
     Indication: CONSTIPATION
     Dosage: 8.6MG DAILY, PRN
     Route: 048
     Dates: start: 201110
  4. GASTROINTESTINAL PREPARATIONS (UNSPECIFIED) [Concomitant]
     Active Substance: UNSPECIFIED INGREDIENT
     Indication: ORAL DISCOMFORT
     Dosage: UNK
     Route: 048
     Dates: start: 201110
  5. ROBINUL [Concomitant]
     Active Substance: GLYCOPYRROLATE
     Indication: ORAL DISCHARGE
     Dosage: 1.5 MG, QD
     Route: 048
     Dates: start: 201110, end: 20131017
  6. XANAX XR [Concomitant]
     Active Substance: ALPRAZOLAM
     Indication: ANXIETY
     Dosage: 0.5 MG, TID
     Route: 048
     Dates: start: 201310
  7. HEPARIN [Concomitant]
     Active Substance: HEPARIN SODIUM
     Indication: ATRIAL FIBRILLATION
     Dosage: UNK
     Route: 065
     Dates: start: 201310
  8. CHLORHEXIDINE GLUCONATE. [Concomitant]
     Active Substance: CHLORHEXIDINE GLUCONATE
     Indication: DENTAL DISORDER PROPHYLAXIS
     Dosage: 5 ML, TID
     Route: 048
     Dates: start: 201110
  9. COZAAR [Concomitant]
     Active Substance: LOSARTAN POTASSIUM
     Indication: HYPERTENSION
     Dosage: 50 MG, BID
     Route: 048
     Dates: start: 201110
  10. HYDRALAZINE [Concomitant]
     Active Substance: HYDRALAZINE HYDROCHLORIDE
     Indication: HYPERTENSION
     Dosage: 20 MG, BID
     Route: 048
     Dates: start: 201110
  11. FAMOTIDINE. [Concomitant]
     Active Substance: FAMOTIDINE
     Indication: DYSPEPSIA
     Dosage: 20 MG, TID
     Route: 048
     Dates: start: 201110
  12. PROCHLORPERAZINE. [Concomitant]
     Active Substance: PROCHLORPERAZINE
     Indication: NAUSEA
     Dosage: 10MG DAILY, PRN
     Route: 048
     Dates: start: 201110
  13. ROBINUL [Concomitant]
     Active Substance: GLYCOPYRROLATE
     Indication: RHINORRHOEA
  14. BENADRYL [Concomitant]
     Active Substance: DIPHENHYDRAMINE HYDROCHLORIDE
     Indication: DYSPNOEA
     Dosage: UNK
     Dates: start: 201303, end: 20130923
  15. ALBUTEROL (+) IPRATROPIUM BROMIDE [Concomitant]
     Indication: RESPIRATORY DISORDER
     Dosage: 0.5MG DAILY, PRN
     Route: 055
     Dates: start: 201110, end: 20131017
  16. LORTAB [Concomitant]
     Active Substance: ACETAMINOPHEN\HYDROCODONE BITARTRATE
     Indication: PAIN
     Dosage: 7.5MG DAILY, PRN
     Route: 048
     Dates: start: 201110
  17. NUTREN REPLETE [Concomitant]
     Indication: GASTROINTESTINAL TUBE INSERTION
     Dosage: 10UNIT DAILY, FREQUENCY REPORTED AS OTHER
     Route: 048
     Dates: start: 201110
  18. PEMBROLIZUMAB. [Suspect]
     Active Substance: PEMBROLIZUMAB
     Indication: HEAD AND NECK CANCER
     Dosage: 10 MG/KG QOW
     Route: 042
     Dates: start: 20130923, end: 20130923
  19. INDOCIN (INDOMETHACIN) [Concomitant]
     Indication: PAIN
     Dosage: 25MG DAILY, PRN
     Route: 048
     Dates: start: 201110, end: 20131017
  20. K-LOR [Concomitant]
     Indication: MINERAL SUPPLEMENTATION
     Dosage: 20 MILLIEQUIVALENT DAILY, PRN
     Route: 048
     Dates: start: 201110, end: 20131017
  21. MIRALAX [Concomitant]
     Active Substance: POLYETHYLENE GLYCOL 3350
     Indication: CONSTIPATION
     Dosage: 17G DAILY, PRN
     Route: 048
     Dates: start: 201110

REACTIONS (3)
  - Cardiac failure congestive [Not Recovered/Not Resolved]
  - Respiratory failure [Not Recovered/Not Resolved]
  - Atrial fibrillation [Not Recovered/Not Resolved]

NARRATIVE: CASE EVENT DATE: 20131007
